FAERS Safety Report 8181858 (Version 3)
Quarter: 2020Q3

REPORT INFORMATION
  Report Type: Spontaneous
  Country: FI (occurrence: None)
  Receive Date: 20111004
  Receipt Date: 20111125
  Transmission Date: 20201104
  Serious: Yes (Hospitalization)
  Sender: FDA-Public Use
  Company Number: 2011SP044463

PATIENT
  Age: 33 Year
  Sex: Female
  Weight: 70 kg

DRUGS (5)
  1. PUREGON [Concomitant]
  2. CORIFOLLITROPIN ALFA. [Suspect]
     Active Substance: CORIFOLLITROPIN ALFA
     Indication: OOCYTE DONATION
     Dosage: 150 MCG;ONCE;SC
     Route: 058
     Dates: start: 20110901, end: 20110901
  3. EXFORGE [Concomitant]
     Active Substance: AMLODIPINE BESYLATE\VALSARTAN
  4. SEPRAM [Concomitant]
  5. GANIRELIX ACETATE. [Suspect]
     Active Substance: GANIRELIX ACETATE
     Indication: OOCYTE DONATION
     Dosage: 1 DF;QD
     Dates: start: 20110905, end: 20110909

REACTIONS (13)
  - Visual acuity reduced [None]
  - Ataxia [None]
  - Visual impairment [None]
  - Hemiparesis [None]
  - Migraine [None]
  - Discomfort [None]
  - Hypoaesthesia [None]
  - Low density lipoprotein increased [None]
  - Unevaluable event [None]
  - Clumsiness [None]
  - Headache [None]
  - Neurological symptom [None]
  - Dysarthria [None]

NARRATIVE: CASE EVENT DATE: 20110907
